FAERS Safety Report 13019033 (Version 1)
Quarter: 2016Q4

REPORT INFORMATION
  Report Type: Spontaneous
  Country: US (occurrence: US)
  Receive Date: 20161212
  Receipt Date: 20161212
  Transmission Date: 20170207
  Serious: No
  Sender: FDA-Public Use
  Company Number: US-RECKITT BENCKISER HEALTHCARE INT LIMITED-RB-85198-2016

PATIENT
  Age: 62 Year
  Sex: Female
  Weight: 72.56 kg

DRUGS (2)
  1. DELSYM [Suspect]
     Active Substance: DEXTROMETHORPHAN
     Dosage: 10 ML, QD (AT NIGHT)
     Route: 065
     Dates: start: 201604, end: 20160409
  2. DELSYM [Suspect]
     Active Substance: DEXTROMETHORPHAN
     Indication: PRODUCT USED FOR UNKNOWN INDICATION
     Dosage: 10 ML, BID (EVERY 12 HOURS)
     Route: 065
     Dates: start: 20160402, end: 201604

REACTIONS (2)
  - Product formulation issue [Unknown]
  - Drug ineffective [Not Recovered/Not Resolved]
